FAERS Safety Report 18991475 (Version 1)
Quarter: 2021Q1

REPORT INFORMATION
  Report Type: Spontaneous
  Country: GB (occurrence: GB)
  Receive Date: 20210310
  Receipt Date: 20210310
  Transmission Date: 20210420
  Serious: Yes (Hospitalization, Other)
  Sender: FDA-Public Use
  Company Number: GB-ACCORD-219155

PATIENT
  Age: 58 Year
  Sex: Female
  Weight: 80 kg

DRUGS (9)
  1. INDIAN GINSENG [Interacting]
     Active Substance: HERBALS\WITHANIA SOMNIFERA ROOT
     Indication: PROPHYLAXIS
     Dosage: GINSENG ? UNSURE WAS HERBAL OTC.
     Route: 048
  2. CODEINE [Concomitant]
     Active Substance: CODEINE
  3. AMLODIPINE [Concomitant]
     Active Substance: AMLODIPINE BESYLATE
  4. KLIOFEM [Concomitant]
     Active Substance: ESTRADIOL\NORETHINDRONE ACETATE
  5. DULOXETINE. [Concomitant]
     Active Substance: DULOXETINE
  6. PROMETHAZINE [Concomitant]
     Active Substance: PROMETHAZINE HYDROCHLORIDE
  7. ATORVASTATIN/ATORVASTATIN CALCIUM [Suspect]
     Active Substance: ATORVASTATIN CALCIUM
     Indication: HYPERCHLORAEMIA
     Route: 048
     Dates: start: 2016, end: 20210101
  8. NAPROXEN. [Concomitant]
     Active Substance: NAPROXEN
  9. LANSOPRAZOLE. [Concomitant]
     Active Substance: LANSOPRAZOLE

REACTIONS (2)
  - Hepatic function abnormal [Recovered/Resolved]
  - Drug interaction [Unknown]

NARRATIVE: CASE EVENT DATE: 20201020
